FAERS Safety Report 8785400 (Version 3)
Quarter: 2012Q4

REPORT INFORMATION
  Report Type: 
  Country: US (occurrence: US)
  Receive Date: 20120914
  Receipt Date: 20121023
  Transmission Date: 20130627
  Serious: Yes (Death, Other)
  Sender: FDA-Public Use
  Company Number: US-SHIRE-ALL1-2012-04323

PATIENT
  Age: 13 Year
  Sex: Female
  Weight: 99.77 kg

DRUGS (8)
  1. INTUNIV [Suspect]
     Indication: ABNORMAL BEHAVIOUR
     Dosage: 2 mg, 1x/day:qd
     Route: 048
     Dates: start: 20110421
  2. INTUNIV [Suspect]
     Indication: IMPULSIVE BEHAVIOUR
     Dosage: 1 mg, 1x/day:qd
     Route: 048
     Dates: start: 20110301, end: 201103
  3. INTUNIV [Suspect]
     Dosage: 2 mg, 1x/day:qd
     Route: 048
     Dates: start: 201103, end: 201103
  4. INTUNIV [Suspect]
     Dosage: 3 mg, 1x/day:qd
     Route: 048
     Dates: start: 201103, end: 201103
  5. INTUNIV [Suspect]
     Dosage: 4 mg, 1x/day:qd
     Route: 048
     Dates: start: 20110301, end: 20110420
  6. VYVANSE [Suspect]
     Indication: ABNORMAL BEHAVIOUR
     Dosage: 50 mg, 1x/day:qd
     Route: 048
  7. VYVANSE [Suspect]
     Indication: IMPULSIVE BEHAVIOUR
     Dosage: 30 mg, 1x/day:qd
     Route: 048
     Dates: start: 20081215
  8. PROPRANOLOL                        /00030002/ [Concomitant]
     Indication: MIGRAINE
     Dosage: 80 mg, 1x/day:qd
     Route: 048

REACTIONS (7)
  - Portal vein thrombosis [Fatal]
  - Splenic vein thrombosis [Fatal]
  - Anaemia [Not Recovered/Not Resolved]
  - Abdominal pain [Not Recovered/Not Resolved]
  - Drug effect increased [Unknown]
  - Drug prescribing error [Not Recovered/Not Resolved]
  - Off label use [Not Recovered/Not Resolved]
